FAERS Safety Report 23701128 (Version 1)
Quarter: 2024Q2

REPORT INFORMATION
  Report Type: Other
  Country: US (occurrence: US)
  Receive Date: 20240403
  Receipt Date: 20240403
  Transmission Date: 20240715
  Serious: Yes (Hospitalization, Other)
  Sender: FDA-Public Use
  Company Number: US-Jiangsu Hansoh Pharmaceutical Co., Ltd-2155166

PATIENT
  Age: 76 Year
  Sex: Female
  Weight: 49.7 kg

DRUGS (3)
  1. GEMCITABINE HYDROCHLORIDE [Suspect]
     Active Substance: GEMCITABINE HYDROCHLORIDE
     Indication: Non-small cell lung cancer stage III
  2. RAMUCIRUMAB [Suspect]
     Active Substance: RAMUCIRUMAB
  3. PEMBROLIZUMAB [Suspect]
     Active Substance: PEMBROLIZUMAB

REACTIONS (1)
  - Renal-limited thrombotic microangiopathy [Recovering/Resolving]
